FAERS Safety Report 9511847 (Version 1)
Quarter: 2013Q1

REPORT INFORMATION
  Report Type: Spontaneous
  Country: US (occurrence: None)
  Receive Date: 20130305
  Receipt Date: 20130305
  Transmission Date: 20140127
  Serious: Yes (Other)
  Sender: FDA-Public Use
  Company Number: 163-21880-12052245

PATIENT
  Age: 52 Year
  Sex: Female
  Weight: 68.95 kg

DRUGS (12)
  1. REVLIMID [Suspect]
     Indication: PLASMA CELL MYELOMA
     Dosage: 25 MG, ONE WEEK AT A TIME, PO
     Route: 048
     Dates: start: 20110801
  2. DOXORUBICIN (DOXORUBICIN) [Concomitant]
  3. ACYCLOVIR (ACICLOVIR) [Concomitant]
  4. DIFLUCAN (FLUCONAZOLE) [Concomitant]
  5. LEVAQUIN (LEVOFLOXACIN) [Concomitant]
  6. OXYCONTIN (OXYCODONE HYDROCHLORIDE) [Concomitant]
  7. OXYCODONE (OXYCODONE) [Concomitant]
  8. PROCARDIA (NIFEDIPINE) [Concomitant]
  9. PROTONIX [Concomitant]
  10. SERTRALINE (SERTRALINE) [Concomitant]
  11. SYNTHROID (LEVOTHYROXINE SODIUM) [Concomitant]
  12. ZOLOFT (SERTRALINE HYDROCHLORIDE) [Concomitant]

REACTIONS (1)
  - Weight decreased [None]
